FAERS Safety Report 9434817 (Version 1)
Quarter: 2013Q3

REPORT INFORMATION
  Report Type: Spontaneous
  Country: US (occurrence: None)
  Receive Date: 20130731
  Receipt Date: 20130731
  Transmission Date: 20140515
  Serious: Yes (Hospitalization)
  Sender: FDA-Public Use
  Company Number: None

PATIENT
  Age: 87 None
  Sex: Female

DRUGS (5)
  1. HYDROCHLOROTHIAZIDE [Suspect]
     Indication: HYPERTENSION
     Dosage: 1 IN A.M BY MOUTH
     Route: 048
     Dates: start: 201203, end: 20130604
  2. FISH OIL [Concomitant]
  3. CRANBERRY EXTRACT [Concomitant]
  4. ASA 81 GRAINS [Concomitant]
  5. MUTIVITAMIN [Concomitant]

REACTIONS (10)
  - Syncope [None]
  - Dehydration [None]
  - Electrolyte imbalance [None]
  - Fall [None]
  - Loss of consciousness [None]
  - Blood potassium decreased [None]
  - Blood sodium decreased [None]
  - Laceration [None]
  - Haematoma [None]
  - Cystitis [None]
